FAERS Safety Report 9215639 (Version 2)
Quarter: 2014Q2

REPORT INFORMATION
  Report Type: Spontaneous
  Country: US (occurrence: US)
  Receive Date: 20130408
  Receipt Date: 20140625
  Transmission Date: 20141212
  Serious: Yes (Hospitalization)
  Sender: FDA-Public Use
  Company Number: US-009507513-1304USA001755

PATIENT
  Age: 71 Year
  Sex: Female

DRUGS (18)
  1. CLARITIN [Suspect]
     Indication: ANTIALLERGIC THERAPY
     Dosage: UNK
     Dates: start: 20130213
  2. ELOTUZUMAB [Suspect]
     Indication: PLASMA CELL MYELOMA
     Dosage: 20 MG/KG, QD
     Route: 042
     Dates: start: 20120724
  3. METHYLPREDNISOLONE [Suspect]
     Dosage: 50 MG, UNK
     Route: 042
     Dates: start: 20120724
  4. BENTYL [Concomitant]
     Dosage: UNK
     Dates: start: 19980408
  5. CYANOCOBALAMIN [Concomitant]
     Dosage: UNK
     Dates: start: 20101124
  6. DIPENTUM [Concomitant]
     Dosage: UNK
     Dates: start: 19980408
  7. ESTRACE [Concomitant]
     Dosage: UNK
     Dates: start: 19980408
  8. HYDROCORTISONE [Concomitant]
     Dosage: UNK
     Dates: start: 20111102
  9. LIBRIUM [Concomitant]
     Dosage: UNK
     Dates: start: 19980408
  10. PANTOPRAZOLE SODIUM [Concomitant]
     Dosage: UNK
     Dates: start: 20040719
  11. PROVERA [Concomitant]
     Dosage: UNK
     Dates: start: 19980408
  12. FLUOXETINE HYDROCHLORIDE [Concomitant]
     Dosage: UNK
     Dates: start: 20090524
  13. SIMVASTATIN [Concomitant]
     Dosage: UNK
     Dates: start: 20120524
  14. VERAPAMIL SR [Concomitant]
     Dosage: UNK
     Dates: start: 20030625
  15. AMOXICILLIN [Concomitant]
     Dosage: UNK
     Dates: start: 20121106
  16. FAMOTIDINE [Concomitant]
     Dosage: 50 MG, UNK
     Route: 042
  17. HYDROXYZINE [Concomitant]
     Dosage: 10 MG, UNK
     Route: 048
  18. ACETAMINOPHEN [Concomitant]
     Dosage: 1000MG

REACTIONS (1)
  - Anaphylactic reaction [Recovered/Resolved]
